FAERS Safety Report 10707617 (Version 1)
Quarter: 2015Q1

REPORT INFORMATION
  Report Type: Spontaneous
  Country: US (occurrence: None)
  Receive Date: 20150112
  Receipt Date: 20150112
  Transmission Date: 20150721
  Serious: No
  Sender: FDA-Public Use
  Company Number: None

PATIENT
  Age: 59 Year
  Sex: Female

DRUGS (11)
  1. CLONIDINE. [Concomitant]
     Active Substance: CLONIDINE
  2. MAGNESIUM [Concomitant]
     Active Substance: MAGNESIUM
  3. ENALAPRIL [Concomitant]
     Active Substance: ENALAPRIL
  4. HZTZ [Concomitant]
  5. HARVONI [Suspect]
     Active Substance: LEDIPASVIR\SOFOSBUVIR
     Indication: HEPATITIS
     Dosage: 1 TABLET QD ORAL
     Route: 048
     Dates: start: 20141217
  6. DIAZEPAM. [Concomitant]
     Active Substance: DIAZEPAM
  7. FOLIC ACID. [Concomitant]
     Active Substance: FOLIC ACID
  8. VALACYCLOVIR [Concomitant]
     Active Substance: VALACYCLOVIR HYDROCHLORIDE
  9. AZITHROMYCIN [Concomitant]
     Active Substance: AZITHROMYCIN ANHYDROUS
  10. VITAMIND [Concomitant]
  11. GAVILYTE [Concomitant]

REACTIONS (5)
  - Fatigue [None]
  - Pain in extremity [None]
  - Dizziness [None]
  - Blood pressure increased [None]
  - Tinnitus [None]

NARRATIVE: CASE EVENT DATE: 20141221
